FAERS Safety Report 24571171 (Version 1)
Quarter: 2024Q4

REPORT INFORMATION
  Report Type: Report from Study
  Country: IN (occurrence: IN)
  Receive Date: 20241101
  Receipt Date: 20241101
  Transmission Date: 20250114
  Serious: Yes (Other)
  Sender: CIPLA
  Company Number: IN-CIPLA LTD.-2024IN11940

PATIENT

DRUGS (5)
  1. SACUBITRIL\VALSARTAN [Suspect]
     Active Substance: SACUBITRIL\VALSARTAN
     Indication: Product used for unknown indication
     Dosage: DOSE USED:1, FREQUENCY: 2(UNSPECIFIED UNITS), STRENGTH: 50MG
     Route: 048
  2. METOPROLOL [Suspect]
     Active Substance: METOPROLOL
     Indication: Product used for unknown indication
     Dosage: DOSE USED-1, FREQUENCY-1 (UNSPECIFIED UNITS, EXTENDED RELASE TABLET, METOLAR XT))
     Route: 048
  3. STATPURE A [Concomitant]
     Indication: Product used for unknown indication
     Dosage: UNK
     Route: 065
  4. TICABID [Concomitant]
     Indication: Product used for unknown indication
     Dosage: UNK
     Route: 065
  5. UDAPA [Concomitant]
     Indication: Product used for unknown indication
     Dosage: UNK
     Route: 065

REACTIONS (2)
  - Coronary artery disease [Not Recovered/Not Resolved]
  - Weight increased [Not Recovered/Not Resolved]

NARRATIVE: CASE EVENT DATE: 20240101
